FAERS Safety Report 4366650-6 (Version None)
Quarter: 2004Q2

REPORT INFORMATION
  Report Type: 
  Country: None (occurrence: None)
  Receive Date: 20040527
  Receipt Date: 20040107
  Transmission Date: 20050107
  Serious: No
  Sender: FDA-Public Use
  Company Number: US-GLAXOSMITHKLINE-A0491896A

PATIENT
  Age: 86 Year
  Sex: Male

DRUGS (3)
  1. AVODART [Suspect]
     Indication: BENIGN PROSTATIC HYPERPLASIA
     Dosage: .5MG PER DAY
     Route: 048
     Dates: start: 20031219, end: 20031229
  2. IRON [Concomitant]
  3. MULTIVITAMIN [Concomitant]

REACTIONS (3)
  - ANXIETY [None]
  - INSOMNIA [None]
  - NERVOUSNESS [None]
